FAERS Safety Report 5795924-7 (Version None)
Quarter: 2008Q3

REPORT INFORMATION
  Report Type: 
  Country: None (occurrence: None)
  Receive Date: 20080701
  Receipt Date: 20080624
  Transmission Date: 20090109
  Serious: Yes (Hospitalization)
  Sender: FDA-Public Use
  Company Number: US-BAYER-200826532NA

PATIENT
  Age: 29 Year
  Sex: Female

DRUGS (2)
  1. MIRENA [Suspect]
     Indication: CONTRACEPTION
     Route: 015
     Dates: start: 20080306
  2. METFORMIN [Concomitant]
     Indication: DIABETES MELLITUS

REACTIONS (7)
  - CONFUSIONAL STATE [None]
  - CONVULSION [None]
  - GENITAL HAEMORRHAGE [None]
  - GLOSSODYNIA [None]
  - HEMICEPHALALGIA [None]
  - LOSS OF CONSCIOUSNESS [None]
  - MENSTRUATION IRREGULAR [None]
